FAERS Safety Report 7705453-9 (Version None)
Quarter: 2011Q3

REPORT INFORMATION
  Report Type: 
  Country: None (occurrence: None)
  Receive Date: 20110818
  Receipt Date: 20110804
  Transmission Date: 20111222
  Serious: Yes (Hospitalization, Other)
  Sender: FDA-Public Use
  Company Number: 2011P1008160

PATIENT
  Age: 47 Year
  Sex: Male
  Weight: 92.9874 kg

DRUGS (21)
  1. COUMADIN [Suspect]
     Indication: MYOCARDIAL INFARCTION
     Dosage: 1 MG;QD;
     Dates: start: 20110327
  2. COUMADIN [Suspect]
     Indication: PULMONARY EMBOLISM
     Dosage: 1 MG;QD;
     Dates: start: 20110327
  3. COUMADIN [Suspect]
     Indication: COAGULOPATHY
     Dosage: 1 MG;QD;
     Dates: start: 20110327
  4. DILAUDID [Concomitant]
  5. SIMVASTATIN [Concomitant]
  6. WARFARIN SODIUM [Suspect]
     Indication: COAGULOPATHY
     Dosage: 7.5 MG;QD;PO ; 5 MG;QD ; 7.5 MG;QD ; 5 MG;QD
     Route: 048
     Dates: start: 20110416
  7. WARFARIN SODIUM [Suspect]
     Indication: PULMONARY EMBOLISM
     Dosage: 7.5 MG;QD;PO ; 5 MG;QD ; 7.5 MG;QD ; 5 MG;QD
     Route: 048
     Dates: start: 20110416
  8. WARFARIN SODIUM [Suspect]
     Indication: MYOCARDIAL INFARCTION
     Dosage: 7.5 MG;QD;PO ; 5 MG;QD ; 7.5 MG;QD ; 5 MG;QD
     Route: 048
     Dates: start: 20110416
  9. WARFARIN SODIUM [Suspect]
     Indication: COAGULOPATHY
     Dosage: 7.5 MG;QD;PO ; 5 MG;QD ; 7.5 MG;QD ; 5 MG;QD
     Route: 048
     Dates: start: 20081122
  10. WARFARIN SODIUM [Suspect]
     Indication: PULMONARY EMBOLISM
     Dosage: 7.5 MG;QD;PO ; 5 MG;QD ; 7.5 MG;QD ; 5 MG;QD
     Route: 048
     Dates: start: 20081122
  11. WARFARIN SODIUM [Suspect]
     Indication: MYOCARDIAL INFARCTION
     Dosage: 7.5 MG;QD;PO ; 5 MG;QD ; 7.5 MG;QD ; 5 MG;QD
     Route: 048
     Dates: start: 20081122
  12. WARFARIN SODIUM [Suspect]
     Indication: COAGULOPATHY
     Dosage: 7.5 MG;QD;PO ; 5 MG;QD ; 7.5 MG;QD ; 5 MG;QD
     Route: 048
     Dates: end: 20110301
  13. WARFARIN SODIUM [Suspect]
     Indication: PULMONARY EMBOLISM
     Dosage: 7.5 MG;QD;PO ; 5 MG;QD ; 7.5 MG;QD ; 5 MG;QD
     Route: 048
     Dates: end: 20110301
  14. WARFARIN SODIUM [Suspect]
     Indication: MYOCARDIAL INFARCTION
     Dosage: 7.5 MG;QD;PO ; 5 MG;QD ; 7.5 MG;QD ; 5 MG;QD
     Route: 048
     Dates: end: 20110301
  15. WARFARIN SODIUM [Suspect]
     Indication: COAGULOPATHY
     Dosage: 7.5 MG;QD;PO ; 5 MG;QD ; 7.5 MG;QD ; 5 MG;QD
     Route: 048
     Dates: start: 20110307, end: 20110301
  16. WARFARIN SODIUM [Suspect]
     Indication: PULMONARY EMBOLISM
     Dosage: 7.5 MG;QD;PO ; 5 MG;QD ; 7.5 MG;QD ; 5 MG;QD
     Route: 048
     Dates: start: 20110307, end: 20110301
  17. WARFARIN SODIUM [Suspect]
     Indication: MYOCARDIAL INFARCTION
     Dosage: 7.5 MG;QD;PO ; 5 MG;QD ; 7.5 MG;QD ; 5 MG;QD
     Route: 048
     Dates: start: 20110307, end: 20110301
  18. PLAVIX [Concomitant]
  19. PROTONIX [Concomitant]
  20. LISINOPRIL [Concomitant]
  21. METOPROLOL TARTRATE [Concomitant]

REACTIONS (10)
  - INTERNATIONAL NORMALISED RATIO INCREASED [None]
  - TRANSIENT ISCHAEMIC ATTACK [None]
  - CHOLECYSTECTOMY [None]
  - CONTUSION [None]
  - CEREBROVASCULAR ACCIDENT [None]
  - BLOOD URINE [None]
  - PRODUCT QUALITY ISSUE [None]
  - MYOCARDIAL INFARCTION [None]
  - TOXICITY TO VARIOUS AGENTS [None]
  - INTERNATIONAL NORMALISED RATIO DECREASED [None]
